FAERS Safety Report 11120118 (Version 5)
Quarter: 2015Q4

REPORT INFORMATION
  Report Type: Report from Study
  Country: EC (occurrence: EC)
  Receive Date: 20150518
  Receipt Date: 20151115
  Transmission Date: 20160304
  Serious: Yes (Hospitalization)
  Sender: FDA-Public Use
  Company Number: PHHY2015EC058175

PATIENT
  Age: 11 Year
  Sex: Female
  Weight: 16 kg

DRUGS (3)
  1. EXJADE [Suspect]
     Active Substance: DEFERASIROX
     Dosage: 1000 MG (60 MG/KG), QD
     Route: 048
     Dates: start: 20150803
  2. HYDROXYUREA. [Concomitant]
     Active Substance: HYDROXYUREA
     Indication: PRODUCT USED FOR UNKNOWN INDICATION
     Route: 065
  3. EXJADE [Suspect]
     Active Substance: DEFERASIROX
     Indication: SICKLE CELL ANAEMIA
     Dosage: 750 MG (45 MG/KG), QD
     Route: 048
     Dates: start: 20110901, end: 20150802

REACTIONS (7)
  - Asthenia [Recovered/Resolved]
  - Off label use [Unknown]
  - Chest pain [Recovered/Resolved]
  - Pneumonia [Recovering/Resolving]
  - Pallor [Unknown]
  - Pharyngitis [Recovered/Resolved]
  - Pallor [Recovered/Resolved]

NARRATIVE: CASE EVENT DATE: 20150803
